FAERS Safety Report 7405191-6 (Version None)
Quarter: 2011Q2

REPORT INFORMATION
  Report Type: 
  Country: None (occurrence: None)
  Receive Date: 20110411
  Receipt Date: 20110330
  Transmission Date: 20111010
  Serious: Yes (Hospitalization)
  Sender: FDA-Public Use
  Company Number: US-BRISTOL-MYERS SQUIBB COMPANY-15658644

PATIENT

DRUGS (1)
  1. WARFARIN SODIUM [Suspect]

REACTIONS (2)
  - EMBOLISM VENOUS [None]
  - HAEMORRHAGE INTRACRANIAL [None]
